FAERS Safety Report 6204702-6 (Version None)
Quarter: 2009Q2

REPORT INFORMATION
  Report Type: 
  Country: None (occurrence: None)
  Receive Date: 20090527
  Receipt Date: 20090518
  Transmission Date: 20091009
  Serious: Yes (Hospitalization, Disabling, Other)
  Sender: FDA-Public Use
  Company Number: PHHY2009PL19194

PATIENT
  Sex: Female
  Weight: 106 kg

DRUGS (1)
  1. ZOMETA [Suspect]
     Indication: OSTEOPOROSIS
     Dosage: 4 MG, ONCE/SINGLE
     Route: 042
     Dates: start: 20080806, end: 20080806

REACTIONS (9)
  - ARTHRALGIA [None]
  - FEELING ABNORMAL [None]
  - FEMUR FRACTURE [None]
  - HEART RATE INCREASED [None]
  - JOINT DESTRUCTION [None]
  - JOINT SURGERY [None]
  - MYALGIA [None]
  - PHYSICAL DISABILITY [None]
  - WALKING AID USER [None]
